FAERS Safety Report 7800225 (Version 10)
Quarter: 2013Q2

REPORT INFORMATION
  Report Type: Report from Study
  Country: US (occurrence: US)
  Receive Date: 20110204
  Receipt Date: 20130509
  Transmission Date: 20140414
  Serious: Yes (Other)
  Sender: FDA-Public Use
  Company Number: PHHY2011US06929

PATIENT
  Age: 5 Year
  Sex: Female

DRUGS (8)
  1. AFINITOR [Suspect]
     Indication: ASTROCYTOMA, LOW GRADE
     Dosage: 2.5 MG
     Dates: start: 20110108
  2. AFINITOR [Suspect]
     Dosage: 5 MG, QD
     Route: 048
     Dates: start: 20110116
  3. KEPPRA [Concomitant]
  4. VIMPAT [Concomitant]
     Dosage: 100 MG, IN THE AM
  5. VIMPAT [Concomitant]
     Dosage: 125 MG, IN THE PM
  6. RAPAMUNE [Concomitant]
  7. DIASTAT [Concomitant]
  8. VIGABATRIN [Concomitant]
     Dosage: 250 MG
     Dates: start: 20130402

REACTIONS (21)
  - Convulsion [Unknown]
  - Infantile spasms [Recovered/Resolved]
  - Staring [Not Recovered/Not Resolved]
  - Pyrexia [Unknown]
  - Hand-foot-and-mouth disease [Not Recovered/Not Resolved]
  - Folliculitis [Recovered/Resolved]
  - Escherichia infection [Unknown]
  - Gastroenteritis viral [Unknown]
  - Lethargy [Not Recovered/Not Resolved]
  - Scratch [Not Recovered/Not Resolved]
  - Skin odour abnormal [Not Recovered/Not Resolved]
  - Sinus headache [Not Recovered/Not Resolved]
  - Abnormal behaviour [Unknown]
  - Malaise [Not Recovered/Not Resolved]
  - Erythema [Not Recovered/Not Resolved]
  - Scab [Not Recovered/Not Resolved]
  - Upper respiratory tract infection [Unknown]
  - Dry skin [Not Recovered/Not Resolved]
  - Rash pruritic [Not Recovered/Not Resolved]
  - Rash [Not Recovered/Not Resolved]
  - Influenza like illness [Not Recovered/Not Resolved]
